FAERS Safety Report 8276498-8 (Version None)
Quarter: 2012Q2

REPORT INFORMATION
  Report Type: 
  Country: None (occurrence: None)
  Receive Date: 20120412
  Receipt Date: 20120404
  Transmission Date: 20120825
  Serious: Yes (Other)
  Sender: FDA-Public Use
  Company Number: US-ROXANE LABORATORIES, INC.-2012-RO-00989RO

PATIENT
  Age: 12 Year
  Sex: Male

DRUGS (12)
  1. QUETIAPINE FUMARATE [Suspect]
     Dosage: 100 MG
  2. LITHIUM CARBONATE [Suspect]
     Indication: BIPOLAR DISORDER
     Dosage: 600 MG
  3. MULTI-VITAMIN [Suspect]
     Dosage: 0.88 MG
  4. LITHIUM CARBONATE [Suspect]
     Dosage: 450 MG
  5. ATENOLOL [Suspect]
     Dosage: 100 MG
  6. CITALOPRAM HYDROBROMIDE [Suspect]
     Dosage: 10 MG
  7. FISH OIL [Suspect]
  8. LAMOTRGINE [Suspect]
     Dosage: 100 MG
  9. ALBUTEROL [Suspect]
     Route: 055
  10. FAMOTIDINE [Suspect]
     Dosage: 10 MG
  11. LEVOTHYROXINE SODIUM [Suspect]
     Indication: HYPOTHYROIDISM
     Dosage: 0.88 MG
  12. HALOPERIDOL [Suspect]
     Dosage: 2.5 MG

REACTIONS (2)
  - HYPOMANIA [None]
  - HYPOTHYROIDISM [None]
